FAERS Safety Report 6269394-9 (Version None)
Quarter: 2009Q3

REPORT INFORMATION
  Report Type: 
  Country: None (occurrence: None)
  Receive Date: 20090713
  Receipt Date: 20090625
  Transmission Date: 20100115
  Serious: Yes (Other)
  Sender: FDA-Public Use
  Company Number: 318575

PATIENT
  Age: 51 Year
  Sex: Female

DRUGS (7)
  1. CIPROFLOXACIN [Suspect]
  2. LYRICA [Suspect]
     Dosage: 25 MG,
  3. (EPANUTIN /00017402/) [Concomitant]
  4. PHENYTOIN SODIUM [Concomitant]
  5. (ANAESTHETICS) [Concomitant]
  6. KEPPRA [Concomitant]
  7. LAMOTRIGINE [Concomitant]

REACTIONS (5)
  - CONDITION AGGRAVATED [None]
  - DRUG INTERACTION [None]
  - EPILEPSY [None]
  - INCORRECT DOSE ADMINISTERED [None]
  - STRESS [None]
